FAERS Safety Report 18009064 (Version 1)
Quarter: 2020Q3

REPORT INFORMATION
  Report Type: Spontaneous
  Country: US (occurrence: US)
  Receive Date: 20200710
  Receipt Date: 20200710
  Transmission Date: 20201103
  Serious: Yes (Other)
  Sender: FDA-Public Use
  Company Number: US-SAOL THERAPEUTICS-2019SAO00276

PATIENT
  Age: 63 Year
  Sex: Male
  Weight: 83.9 kg

DRUGS (6)
  1. LIORESAL [Suspect]
     Active Substance: BACLOFEN
     Dosage: 333.6 ?G, \DAY
     Route: 037
     Dates: start: 2019, end: 2019
  2. LIORESAL [Suspect]
     Active Substance: BACLOFEN
     Indication: MUSCLE SPASTICITY
     Dosage: 333.6 ?G, \DAY
     Route: 037
     Dates: start: 2019
  3. LIORESAL [Suspect]
     Active Substance: BACLOFEN
     Indication: MUSCLE SPASTICITY
     Dosage: UNK ?G, \DAY; DAILY DOSE INCREASED 5%
     Route: 037
     Dates: end: 20190530
  4. LIORESAL [Suspect]
     Active Substance: BACLOFEN
     Dosage: UNK
  5. LIORESAL [Suspect]
     Active Substance: BACLOFEN
     Dosage: UNK ?G, \DAY; DAILY DOSE INCREASED 5%
     Route: 037
     Dates: start: 20190530, end: 20190614
  6. LIORESAL [Suspect]
     Active Substance: BACLOFEN
     Dosage: UNK ?G, \DAY
     Dates: start: 20190614, end: 2019

REACTIONS (2)
  - Device issue [Recovered/Resolved]
  - Muscle spasticity [Recovering/Resolving]

NARRATIVE: CASE EVENT DATE: 201905
